FAERS Safety Report 4609582-8 (Version None)
Quarter: 2005Q1

REPORT INFORMATION
  Report Type: 
  Country: None (occurrence: None)
  Receive Date: 20050314
  Receipt Date: 20050303
  Transmission Date: 20050727
  Serious: Yes (Disabling)
  Sender: FDA-Public Use
  Company Number: 2005UW03632

PATIENT
  Age: 53 Year
  Sex: Male
  Weight: 95.709 kg

DRUGS (2)
  1. LOSEC [Suspect]
     Indication: GASTROOESOPHAGEAL REFLUX DISEASE
     Dates: start: 20050101, end: 20050215
  2. SINUTAB ^PARKE DAVIS^ [Concomitant]

REACTIONS (1)
  - MACULOPATHY [None]
